FAERS Safety Report 4584129-3 (Version None)
Quarter: 2005Q1

REPORT INFORMATION
  Report Type: 
  Country: None (occurrence: None)
  Receive Date: 20050216
  Receipt Date: 20050210
  Transmission Date: 20050727
  Serious: Yes (Hospitalization)
  Sender: FDA-Public Use
  Company Number: US-MERCK-0502USA01262

PATIENT
  Age: 38 Year
  Sex: Female

DRUGS (2)
  1. VIOXX [Suspect]
     Route: 048
  2. XANAX [Concomitant]
     Indication: PANIC ATTACK
     Route: 065

REACTIONS (1)
  - CHEST PAIN [None]
